FAERS Safety Report 9228504 (Version 1)
Quarter: 2013Q2

REPORT INFORMATION
  Report Type: Report from Study
  Country: US (occurrence: US)
  Receive Date: 20130412
  Receipt Date: 20130412
  Transmission Date: 20140414
  Serious: Yes (Hospitalization)
  Sender: FDA-Public Use
  Company Number: US-ABBOTT-13P-163-1071960-00

PATIENT
  Age: 27 Year
  Sex: Male
  Weight: 68.1 kg

DRUGS (7)
  1. HUMIRA [Suspect]
     Indication: CROHN^S DISEASE
     Dates: start: 2011
  2. METHOTREXATE [Concomitant]
     Indication: CROHN^S DISEASE
  3. ULTRAM [Concomitant]
     Indication: CROHN^S DISEASE
  4. FOLIC ACID [Concomitant]
     Indication: CROHN^S DISEASE
  5. OMEPRAZOLE [Concomitant]
     Indication: CROHN^S DISEASE
  6. METRONIDAZOL [Concomitant]
     Indication: CROHN^S DISEASE
  7. LOPERAMIDE [Concomitant]
     Indication: CROHN^S DISEASE

REACTIONS (7)
  - Fistula [Recovered/Resolved]
  - Intestinal obstruction [Recovered/Resolved]
  - Ileus [Recovered/Resolved]
  - Abdominal pain [Recovered/Resolved]
  - Diarrhoea [Recovered/Resolved]
  - Fatigue [Not Recovered/Not Resolved]
  - Injection site bruising [Recovered/Resolved]
